FAERS Safety Report 8474311-7 (Version None)
Quarter: 2012Q2

REPORT INFORMATION
  Report Type: 
  Country: None (occurrence: None)
  Receive Date: 20120628
  Receipt Date: 20120621
  Transmission Date: 20120825
  Serious: No
  Sender: FDA-Public Use
  Company Number: US-B.I. PHARMACEUTICALS,INC./RIDGEFIELD-2012-BP-14218BP

PATIENT
  Age: 80 Year
  Sex: Female

DRUGS (9)
  1. RANITIDINE [Concomitant]
     Indication: GASTRIC DISORDER
     Dosage: 300 MG
     Route: 048
  2. FISH OIL [Concomitant]
     Indication: SUPPLEMENTATION THERAPY
  3. METOPROLOL TARTRATE [Concomitant]
     Indication: HYPERTENSION
     Dosage: 50 MG
     Route: 048
  4. PRADAXA [Suspect]
     Indication: ATRIAL FIBRILLATION
     Dosage: 300 MG
     Route: 048
     Dates: start: 20120101
  5. CRESTOR [Concomitant]
     Indication: BLOOD CHOLESTEROL INCREASED
     Dosage: 20 MG
     Route: 048
  6. MULTI-VITAMINS [Concomitant]
     Indication: SUPPLEMENTATION THERAPY
  7. OMEPRAZOLE [Concomitant]
     Indication: HIATUS HERNIA
     Dosage: 20 MG
     Route: 048
  8. NEURONTIN [Concomitant]
     Indication: PAIN
     Dosage: 300 MG
     Route: 048
  9. ASPIRIN [Concomitant]
     Indication: PROPHYLAXIS
     Dosage: 81 MG
     Route: 048

REACTIONS (2)
  - BACK PAIN [None]
  - FATIGUE [None]
